FAERS Safety Report 17444525 (Version 1)
Quarter: 2020Q1

REPORT INFORMATION
  Report Type: Spontaneous
  Country: US (occurrence: US)
  Receive Date: 20200221
  Receipt Date: 20200221
  Transmission Date: 20200409
  Serious: Yes (Hospitalization, Other)
  Sender: FDA-Public Use
  Company Number: NVSC2020US047906

PATIENT
  Age: 72 Year
  Sex: Female

DRUGS (1)
  1. ACETAMINOPHEN (PARACETAMOL) [Suspect]
     Active Substance: ACETAMINOPHEN
     Indication: OSTEOARTHRITIS
     Dosage: UNK
     Route: 065

REACTIONS (2)
  - Drug-induced liver injury [Unknown]
  - Abdominal pain upper [Recovered/Resolved]
